FAERS Safety Report 21301915 (Version 1)
Quarter: 2022Q3

REPORT INFORMATION
  Report Type: Spontaneous
  Country: US (occurrence: None)
  Receive Date: 20220906
  Receipt Date: 20220906
  Transmission Date: 20221026
  Serious: Yes (Hospitalization, Other)
  Sender: FDA-Public Use
  Company Number: None

PATIENT
  Age: 87 Year
  Sex: Male
  Weight: 72 kg

DRUGS (1)
  1. CEFEPIME HYDROCHLORIDE [Suspect]
     Active Substance: CEFEPIME HYDROCHLORIDE
     Indication: Arthritis infective
     Dates: start: 20220506, end: 20220508

REACTIONS (7)
  - Malaise [None]
  - Confusional state [None]
  - Cardiac failure congestive [None]
  - Arthritis infective [None]
  - Pneumonia [None]
  - Somnolence [None]
  - Acute kidney injury [None]

NARRATIVE: CASE EVENT DATE: 20220506
